FAERS Safety Report 5141253-4 (Version None)
Quarter: 2006Q4

REPORT INFORMATION
  Report Type: 
  Country: None (occurrence: None)
  Receive Date: 20061101
  Receipt Date: 20061019
  Transmission Date: 20070319
  Serious: Yes (Other)
  Sender: FDA-Public Use
  Company Number: PHEH2006US13200

PATIENT
  Age: 60 Year
  Sex: Female

DRUGS (3)
  1. FASLODEX [Concomitant]
  2. ANTI-DIABETICS [Concomitant]
  3. ZOMETA [Suspect]
     Indication: BREAST CANCER METASTATIC
     Dosage: 4 MG IV MONTHLY
     Dates: start: 20050301, end: 20060301

REACTIONS (1)
  - OSTEONECROSIS [None]
